FAERS Safety Report 25433417 (Version 1)
Quarter: 2025Q2

REPORT INFORMATION
  Report Type: Spontaneous
  Country: US (occurrence: US)
  Receive Date: 20250613
  Receipt Date: 20250613
  Transmission Date: 20250717
  Serious: Yes (Hospitalization)
  Sender: MYLAN
  Company Number: US-MYLANLABS-2025M1049056

PATIENT
  Age: 73 Year
  Sex: Male

DRUGS (6)
  1. APIXABAN [Suspect]
     Active Substance: APIXABAN
     Indication: Atrial flutter
  2. SUCCINYLCHOLINE [Concomitant]
     Active Substance: SUCCINYLCHOLINE
     Indication: General anaesthesia
  3. PROPOFOL [Concomitant]
     Active Substance: PROPOFOL
     Indication: General anaesthesia
  4. FENTANYL [Concomitant]
     Active Substance: FENTANYL
     Indication: General anaesthesia
  5. ISOFLURANE [Concomitant]
     Active Substance: ISOFLURANE
     Indication: Maintenance of anaesthesia
  6. REMIFENTANIL [Concomitant]
     Active Substance: REMIFENTANIL
     Indication: Maintenance of anaesthesia

REACTIONS (2)
  - Coagulopathy [Recovered/Resolved]
  - Procedural haemorrhage [Recovering/Resolving]
